FAERS Safety Report 8543074-9 (Version None)
Quarter: 2012Q3

REPORT INFORMATION
  Report Type: 
  Country: None (occurrence: None)
  Receive Date: 20120716
  Receipt Date: 20120629
  Transmission Date: 20120928
  Serious: Yes (Hospitalization, Other)
  Sender: FDA-Public Use
  Company Number: 2012-000841

PATIENT
  Age: 77 Year
  Sex: Male

DRUGS (36)
  1. KLOR-CON [Concomitant]
  2. CALCIUM CARBONATE [Concomitant]
  3. ACTONEL [Suspect]
     Indication: OSTEOPOROSIS
     Dosage: 35 MG ONCE WEEKLY, ORAL
     Route: 048
     Dates: start: 20020820
  4. WARFARIN SODIUM [Concomitant]
  5. ENABLEX [Concomitant]
  6. AMBIEN [Concomitant]
  7. TYELENOL W CODDEINE NO 3 (CODENE PHOSPHATE WITH ACETAMINOPHEN [Concomitant]
  8. DETROL [Concomitant]
  9. BEXTRA  (PARECOXIB SODIUM) [Concomitant]
  10. ACTONEL [Suspect]
     Indication: OSTEOPOROSIS
     Dosage: 30 MG ONCE WEEKLY
     Dates: start: 20011114, end: 20020801
  11. FOSAMAX PLUS D [Suspect]
     Indication: OSTEOPOROSIS
     Dosage: 70 MG, 1/WEEK, ORAL
     Route: 048
     Dates: start: 20060911
  12. FOSAMAX PLUS D [Suspect]
     Indication: OSTEOPOROSIS
     Dosage: 70 MG, 1/WEEK, ORAL
     Route: 048
     Dates: start: 19960801, end: 19960101
  13. FLOMAX [Concomitant]
  14. LUMIGAN [Concomitant]
  15. SANCTURA [Concomitant]
  16. METHYLPREDNISOLONE [Concomitant]
  17. CEFADOXIL [Concomitant]
  18. DEXTROPROPOXYPHENE NAPSYLATE [Concomitant]
  19. FOSAMAX [Suspect]
     Indication: OSTEOPOROSIS
     Dosage: 70 MG, 1/WEEK, ORAL
     Route: 048
     Dates: start: 20060412
  20. VIAGRA [Concomitant]
  21. HYDROCHLOROTHIAZIDE [Concomitant]
  22. TRICOR [Concomitant]
  23. LEVITRA [Concomitant]
  24. MULTIVITAMIN [Concomitant]
  25. MIACALCIN [Concomitant]
  26. GEMFIBROZIL [Concomitant]
  27. VIOXX [Concomitant]
  28. VESICARE [Concomitant]
  29. ALPRAZOLAM [Concomitant]
  30. TEMAZEPAM [Concomitant]
  31. SULFAMETHOXAZOLE WITH TRIMETHOPRIM [Concomitant]
  32. TIMOLOL MALEATE [Concomitant]
  33. DIGOXIN [Concomitant]
  34. FOLIC ACID [Concomitant]
  35. CEPHALEXIN [Concomitant]
  36. SCOPOLAMINE [Concomitant]

REACTIONS (4)
  - PAIN IN EXTREMITY [None]
  - FRACTURE DISPLACEMENT [None]
  - FALL [None]
  - FEMUR FRACTURE [None]
